FAERS Safety Report 8462251-9 (Version None)
Quarter: 2012Q2

REPORT INFORMATION
  Report Type: 
  Country: None (occurrence: None)
  Receive Date: 20120618
  Receipt Date: 20120602
  Transmission Date: 20120825
  Serious: Yes (Other)
  Sender: FDA-Public Use
  Company Number: 2012AP001711

PATIENT
  Age: 75 Year
  Sex: Female

DRUGS (1)
  1. LEVOFLOXACIN [Suspect]
     Indication: CYSTITIS HAEMORRHAGIC
     Dosage: 500 MG;BID

REACTIONS (2)
  - PHOTOSENSITIVITY REACTION [None]
  - CAPILLARITIS [None]
